FAERS Safety Report 16056798 (Version 1)
Quarter: 2019Q2

REPORT INFORMATION
  Report Type: Spontaneous
  Country: US (occurrence: US)
  Receive Date: 20190310
  Receipt Date: 20190310
  Transmission Date: 20190711
  Serious: No
  Sender: FDA-Public Use
  Company Number: None

PATIENT
  Age: 33 Year
  Sex: Female
  Weight: 103.42 kg

DRUGS (1)
  1. MIRENA [Suspect]
     Active Substance: LEVONORGESTREL
     Dates: start: 20130615, end: 20180712

REACTIONS (6)
  - Middle insomnia [None]
  - Uterine spasm [None]
  - Device expulsion [None]
  - Uterine perforation [None]
  - Dyspareunia [None]
  - Complication associated with device [None]

NARRATIVE: CASE EVENT DATE: 20171015
